FAERS Safety Report 13397835 (Version 3)
Quarter: 2017Q2

REPORT INFORMATION
  Report Type: Spontaneous
  Country: FR (occurrence: FR)
  Receive Date: 20170403
  Receipt Date: 20170505
  Transmission Date: 20170830
  Serious: Yes (Other)
  Sender: FDA-Public Use
  Company Number: FR-RARE DISEASE THERAPEUTICS, INC.-1064934

PATIENT
  Age: 7 Year
  Sex: Female
  Weight: 18.5 kg

DRUGS (11)
  1. METHIONINE [Concomitant]
     Active Substance: METHIONINE
  2. CYSTADANE [Suspect]
     Active Substance: BETAINE
     Indication: VITAMIN B12 DEFICIENCY
     Route: 048
  3. CYSTADANE [Suspect]
     Active Substance: BETAINE
     Route: 048
     Dates: start: 201608
  4. CYSTADANE [Suspect]
     Active Substance: BETAINE
     Route: 048
     Dates: start: 201406
  5. LEVOCARNIL [Concomitant]
     Active Substance: LEVOCARNITINE
  6. CYSTADANE [Suspect]
     Active Substance: BETAINE
     Route: 048
     Dates: start: 201506, end: 20151116
  7. CYSTADANE [Suspect]
     Active Substance: BETAINE
     Route: 048
     Dates: start: 20151117
  8. FOLINIC ACID [Concomitant]
     Active Substance: LEUCOVORIN
  9. INEXIUM [Concomitant]
     Active Substance: ESOMEPRAZOLE
  10. CYSTADANE [Suspect]
     Active Substance: BETAINE
     Route: 048
     Dates: start: 201606
  11. DODECAVIT [Concomitant]
     Active Substance: HYDROXOCOBALAMIN ACETATE

REACTIONS (1)
  - Dry skin [Not Recovered/Not Resolved]

NARRATIVE: CASE EVENT DATE: 201602
